FAERS Safety Report 25579873 (Version 1)
Quarter: 2025Q3

REPORT INFORMATION
  Report Type: Spontaneous
  Country: US (occurrence: US)
  Receive Date: 20250718
  Receipt Date: 20250718
  Transmission Date: 20251020
  Serious: No
  Sender: NOVO NORDISK
  Company Number: US-NOVOPROD-1310507

PATIENT
  Sex: Female

DRUGS (1)
  1. WEGOVY [Suspect]
     Active Substance: SEMAGLUTIDE
     Indication: Product used for unknown indication
     Route: 058
     Dates: start: 202406

REACTIONS (5)
  - Hunger [Unknown]
  - Weight decreased [Unknown]
  - Injection site swelling [Recovered/Resolved]
  - Nausea [Recovering/Resolving]
  - Off label use [Unknown]
